FAERS Safety Report 24980486 (Version 1)
Quarter: 2025Q1

REPORT INFORMATION
  Report Type: Spontaneous
  Country: US (occurrence: US)
  Receive Date: 20250218
  Receipt Date: 20250218
  Transmission Date: 20250408
  Serious: No
  Sender: ALEXION PHARMACEUTICALS
  Company Number: US-AstraZeneca-2001UW15937

PATIENT
  Age: 76 Year
  Weight: 83.2 kg

DRUGS (3)
  1. NEXIUM [Suspect]
     Active Substance: ESOMEPRAZOLE MAGNESIUM
     Indication: Abdominal pain upper
     Dosage: 40 MILLIGRAM, QD
  2. ISOPTO-MAXIDEX [Concomitant]
  3. NAPROSYN [Concomitant]
     Active Substance: NAPROXEN

REACTIONS (1)
  - Tinnitus [Unknown]
